FAERS Safety Report 9782295 (Version 2)
Quarter: 2014Q1

REPORT INFORMATION
  Report Type: Spontaneous
  Country: SE (occurrence: SE)
  Receive Date: 20131226
  Receipt Date: 20140306
  Transmission Date: 20141002
  Serious: Yes (Hospitalization, Other)
  Sender: FDA-Public Use
  Company Number: SE-JNJFOC-20131213885

PATIENT
  Age: 57 Year
  Sex: Female

DRUGS (5)
  1. REMICADE [Suspect]
     Indication: ARTHRITIS REACTIVE
     Route: 042
     Dates: start: 201202
  2. REMICADE [Suspect]
     Indication: ARTHRITIS REACTIVE
     Route: 042
     Dates: start: 201111
  3. REMICADE [Suspect]
     Indication: ARTHRITIS REACTIVE
     Route: 042
     Dates: start: 200909
  4. REMICADE [Suspect]
     Indication: ARTHRITIS REACTIVE
     Route: 042
     Dates: start: 201107, end: 201111
  5. ANERVAN [Concomitant]
     Route: 065

REACTIONS (4)
  - Carcinoid tumour of the small bowel [Unknown]
  - Metastases to liver [Unknown]
  - Pneumonia [Unknown]
  - Condition aggravated [Unknown]
